FAERS Safety Report 7096323-0 (Version None)
Quarter: 2010Q4

REPORT INFORMATION
  Report Type: 
  Country: None (occurrence: None)
  Receive Date: 20101111
  Receipt Date: 20101029
  Transmission Date: 20110411
  Serious: Yes (Hospitalization)
  Sender: FDA-Public Use
  Company Number: JP-AMGEN-US444458

PATIENT

DRUGS (17)
  1. ETANERCEPT [Suspect]
     Indication: RHEUMATOID ARTHRITIS
     Dosage: 25 MG, 2 TIMES/WK
     Route: 065
     Dates: start: 20080812, end: 20090220
  2. LEFLUNOMIDE [Concomitant]
     Indication: RHEUMATOID ARTHRITIS
     Dosage: UNK UNK, UNK
     Route: 065
  3. LEFLUNOMIDE [Concomitant]
     Dosage: DOSE UNKNOWN
     Route: 065
  4. LEFLUNOMIDE [Concomitant]
     Route: 048
  5. PREDNISOLONE [Concomitant]
     Indication: RHEUMATOID ARTHRITIS
     Route: 048
  6. MOBIC [Concomitant]
     Indication: RHEUMATOID ARTHRITIS
     Route: 048
  7. OMEPRAL [Concomitant]
     Indication: GASTRITIS
     Route: 048
  8. CYANOCOBALAMIN [Concomitant]
     Indication: MACULAR DEGENERATION
     Route: 048
  9. ISCOTIN [Concomitant]
     Indication: ANTIBIOTIC PROPHYLAXIS
     Route: 048
     Dates: end: 20090224
  10. ISCOTIN [Concomitant]
     Dosage: UNSPECIFIED
     Route: 048
     Dates: start: 20090502, end: 20091202
  11. GANATON [Concomitant]
     Indication: GASTRITIS
     Route: 048
  12. BONALON [Concomitant]
     Indication: OSTEOPOROSIS
     Route: 048
  13. AMOBAN [Concomitant]
     Indication: INSOMNIA
     Route: 048
  14. DICLOFENAC SODIUM [Concomitant]
     Indication: RHEUMATOID ARTHRITIS
     Route: 054
  15. NORVASC [Concomitant]
     Indication: HYPERTENSION
     Route: 048
  16. ZETIA [Concomitant]
     Indication: HYPERLIPIDAEMIA
     Route: 048
  17. ALFACALCIDOL [Concomitant]
     Indication: OSTEOPOROSIS
     Route: 048

REACTIONS (4)
  - ARTHRALGIA [None]
  - CONDITION AGGRAVATED [None]
  - HENOCH-SCHONLEIN PURPURA [None]
  - RHEUMATOID ARTHRITIS [None]
